FAERS Safety Report 26097494 (Version 2)
Quarter: 2025Q4

REPORT INFORMATION
  Report Type: Spontaneous
  Country: EU (occurrence: EU)
  Receive Date: 20251127
  Receipt Date: 20251203
  Transmission Date: 20260117
  Serious: Yes (Hospitalization, Other)
  Sender: SANDOZ
  Company Number: None

PATIENT
  Age: 14 Year
  Sex: Female
  Weight: 68 kg

DRUGS (21)
  1. DIPRIVAN [Suspect]
     Active Substance: PROPOFOL
     Indication: Anaesthesia
     Dosage: 20 MILLIGRAM, 1 DOSAGE TOTAL
     Route: 042
     Dates: start: 20240819, end: 20240819
  2. ACUPAN [Suspect]
     Active Substance: NEFOPAM HYDROCHLORIDE
     Indication: Pain
     Dosage: UNK
     Route: 058
     Dates: start: 20240819, end: 20240822
  3. CISATRACURIUM BESYLATE [Suspect]
     Active Substance: CISATRACURIUM BESYLATE
     Indication: Anaesthesia
     Dosage: 10 MILLIGRAM, 1 DOSAGE TOTAL
     Route: 042
     Dates: start: 20240819, end: 20240819
  4. CEFAZOLIN [Suspect]
     Active Substance: CEFAZOLIN
     Indication: Antibiotic prophylaxis
     Dosage: 2 GRAM, 1 DOSAGE TOTAL
     Route: 042
     Dates: start: 20240819, end: 20240819
  5. ACETAMINOPHEN\CODEINE PHOSPHATE [Suspect]
     Active Substance: ACETAMINOPHEN\CODEINE PHOSPHATE
     Indication: Pain
     Dosage: UNK
     Route: 048
     Dates: start: 20240819, end: 20240822
  6. DECADRON (DEXAMETHASONE SODIUM PHOSPHATE) [Suspect]
     Active Substance: DEXAMETHASONE SODIUM PHOSPHATE
     Indication: Anaesthesia
     Dosage: 8 MILLIGRAM, 1 DOSAGE TOTAL
     Route: 042
     Dates: start: 20240819, end: 20240819
  7. DROPERIDOL [Suspect]
     Active Substance: DROPERIDOL
     Indication: Anaesthesia
     Dosage: 125 MILLIGRAM, 1 DOSAGE TOTAL
     Route: 042
     Dates: start: 20240819, end: 20240819
  8. KETAMINE [Suspect]
     Active Substance: KETAMINE
     Indication: Anaesthesia
     Dosage: 20 MILLIGRAM, 1 DOSAGE TOTAL
     Route: 042
     Dates: start: 20240819, end: 20240819
  9. LOVENOX [Suspect]
     Active Substance: ENOXAPARIN SODIUM
     Indication: Anticoagulant therapy
     Dosage: UNK
     Route: 058
     Dates: start: 20240819, end: 20240822
  10. NICARDIPINE HYDROCHLORIDE [Suspect]
     Active Substance: NICARDIPINE HYDROCHLORIDE
     Indication: Product used for unknown indication
     Dosage: 80 MILLIGRAM, 1 DOSAGE TOTAL
     Route: 048
     Dates: start: 20240819, end: 20240819
  11. MIDAZOLAM HYDROCHLORIDE [Suspect]
     Active Substance: MIDAZOLAM HYDROCHLORIDE
     Indication: Anaesthesia
     Dosage: 2 MILLIGRAM, 1 DOSAGE TOTAL
     Route: 042
     Dates: start: 20240819, end: 20240819
  12. ROPIVACAINE HYDROCHLORIDE [Suspect]
     Active Substance: ROPIVACAINE HYDROCHLORIDE
     Indication: Anaesthesia
     Dosage: UNK
     Route: 042
     Dates: start: 20240819, end: 20240819
  13. OMEPRAZOLE [Suspect]
     Active Substance: OMEPRAZOLE
     Indication: Prophylaxis
     Dosage: UNK
     Route: 048
     Dates: start: 20240819, end: 20240822
  14. OMEPRAZOLE [Suspect]
     Active Substance: OMEPRAZOLE
     Indication: Prophylaxis
  15. PRIMPERAN [Suspect]
     Active Substance: METOCLOPRAMIDE HYDROCHLORIDE
     Indication: Prophylaxis of nausea and vomiting
     Dosage: UNK
     Route: 048
     Dates: start: 20240819, end: 20240822
  16. KETOPROFEN [Suspect]
     Active Substance: KETOPROFEN
     Indication: Antiinflammatory therapy
     Dosage: 100 MILLIGRAM, 1 DOSAGE TOTAL
     Route: 042
     Dates: start: 20240819, end: 20240819
  17. SEVOFLURANE [Suspect]
     Active Substance: SEVOFLURANE
     Indication: Anaesthesia
     Dosage: UNK
     Route: 042
     Dates: start: 20240819, end: 20240819
  18. SUFENTANIL [Suspect]
     Active Substance: SUFENTANIL
     Indication: Anaesthesia
     Dosage: 15 MICROGRAM, 1 DOSAGE TOTAL
     Route: 042
     Dates: start: 20240819, end: 20240819
  19. TRAMADOL HYDROCHLORIDE [Suspect]
     Active Substance: TRAMADOL HYDROCHLORIDE
     Indication: Anaesthesia
     Dosage: UNK
     Route: 048
     Dates: start: 20240819, end: 20240822
  20. VOLTARENE (DICLOFENAC SODIUM) [Suspect]
     Active Substance: DICLOFENAC SODIUM
     Indication: Antiinflammatory therapy
     Dosage: UNK
     Route: 065
     Dates: start: 20240819, end: 20240822
  21. ONDANSETRON [Suspect]
     Active Substance: ONDANSETRON
     Indication: Prophylaxis of nausea and vomiting
     Dosage: 8 DOSAGE FORM, 1 DOSAGE TOTAL
     Route: 042
     Dates: start: 20240819, end: 20240819

REACTIONS (4)
  - Urinary retention [Recovered/Resolved]
  - Anuria [Recovered/Resolved]
  - Hepatic cytolysis [Recovered/Resolved]
  - Constipation [Recovered/Resolved]

NARRATIVE: CASE EVENT DATE: 20240819
